FAERS Safety Report 8277400-5 (Version None)
Quarter: 2012Q2

REPORT INFORMATION
  Report Type: 
  Country: None (occurrence: None)
  Receive Date: 20120412
  Receipt Date: 20120410
  Transmission Date: 20120825
  Serious: Yes (Hospitalization, Other)
  Sender: FDA-Public Use
  Company Number: PHEH2011US08303

PATIENT
  Sex: Female

DRUGS (12)
  1. PROTONIX [Concomitant]
     Route: 048
  2. ZANTAC [Concomitant]
     Route: 048
  3. GILENYA [Suspect]
     Indication: MULTIPLE SCLEROSIS
     Dosage: 0.5 MG, DAILY
     Route: 048
     Dates: start: 20110719, end: 20111029
  4. METHADONE HCL [Concomitant]
     Route: 048
  5. GILENYA [Suspect]
     Dosage: 0.5 MG, DAILY
     Route: 048
  6. TRAZODONE HCL [Concomitant]
     Route: 048
  7. CYMBALTA [Concomitant]
     Route: 048
  8. LYRICA [Concomitant]
     Route: 048
  9. AMBIEN [Concomitant]
     Route: 048
  10. TIZANIDINE HCL [Concomitant]
     Route: 048
  11. EXCEDRIN (MIGRAINE) [Concomitant]
     Route: 048
  12. XANAX [Concomitant]
     Route: 048

REACTIONS (5)
  - DRUG INEFFECTIVE [None]
  - FATIGUE [None]
  - HEADACHE [None]
  - CENTRAL NERVOUS SYSTEM LESION [None]
  - ABDOMINAL PAIN [None]
